FAERS Safety Report 19482859 (Version 2)
Quarter: 2021Q3

REPORT INFORMATION
  Report Type: Spontaneous
  Country: US (occurrence: US)
  Receive Date: 20210701
  Receipt Date: 20210705
  Transmission Date: 20211014
  Serious: No
  Sender: FDA-Public Use
  Company Number: NVSC2021US146110

PATIENT
  Sex: Female

DRUGS (1)
  1. XIIDRA [Suspect]
     Active Substance: LIFITEGRAST
     Indication: PRODUCT USED FOR UNKNOWN INDICATION
     Dosage: BID (ONE DS EACH EYE)
     Route: 065
     Dates: start: 20210627, end: 20210627

REACTIONS (4)
  - Vision blurred [Unknown]
  - Abdominal discomfort [Unknown]
  - Dysgeusia [Unknown]
  - Eye irritation [Unknown]
